FAERS Safety Report 9263883 (Version 1)
Quarter: 2013Q2

REPORT INFORMATION
  Report Type: Spontaneous
  Country: US (occurrence: None)
  Receive Date: 20130429
  Receipt Date: 20130429
  Transmission Date: 20140414
  Serious: No
  Sender: FDA-Public Use
  Company Number: None

PATIENT
  Age: 62 Year
  Sex: Female
  Weight: 72.58 kg

DRUGS (2)
  1. ESCITALOPRAM [Suspect]
     Indication: ANXIETY
     Route: 048
     Dates: start: 20130318, end: 20130328
  2. ESCITALOPRAM [Suspect]
     Indication: DEPRESSION
     Route: 048
     Dates: start: 20130318, end: 20130328

REACTIONS (3)
  - Drug ineffective [None]
  - Product substitution issue [None]
  - Product quality issue [None]
